FAERS Safety Report 16981168 (Version 1)
Quarter: 2019Q4

REPORT INFORMATION
  Report Type: Spontaneous
  Country: IT (occurrence: IT)
  Receive Date: 20191031
  Receipt Date: 20191031
  Transmission Date: 20200122
  Serious: Yes (Other)
  Sender: FDA-Public Use
  Company Number: IT-SAMSUNG BIOEPIS-SB-2019-31607

PATIENT
  Age: 72 Year
  Sex: Male
  Weight: 64 kg

DRUGS (1)
  1. FLIXABI [Suspect]
     Active Substance: INFLIXIMAB
     Indication: PSORIASIS
     Route: 042
     Dates: start: 20180912, end: 20181121

REACTIONS (4)
  - Psoriasis [Not Recovered/Not Resolved]
  - Product use in unapproved indication [Unknown]
  - Condition aggravated [Not Recovered/Not Resolved]
  - Drug ineffective [Not Recovered/Not Resolved]

NARRATIVE: CASE EVENT DATE: 20181221
